FAERS Safety Report 7349067-1 (Version None)
Quarter: 2011Q1

REPORT INFORMATION
  Report Type: 
  Country: None (occurrence: None)
  Receive Date: 20110303
  Receipt Date: 20110219
  Transmission Date: 20110831
  Serious: Yes (Other)
  Sender: FDA-Public Use
  Company Number: IPC201102-000132

PATIENT
  Age: 79 Year
  Sex: Male

DRUGS (1)
  1. PROPRANOLOL HYDROCHLORIDE (PROPRANOLOL HYDROCHLORIDE) (PROPRANOLOL HYD [Suspect]
     Indication: ESSENTIAL TREMOR
     Dosage: 120 MG/DAY

REACTIONS (7)
  - CEREBRAL ATROPHY [None]
  - HEART RATE DECREASED [None]
  - DRUG INEFFECTIVE [None]
  - CEREBRAL SMALL VESSEL ISCHAEMIC DISEASE [None]
  - ACTIVITIES OF DAILY LIVING IMPAIRED [None]
  - COGNITIVE DISORDER [None]
  - VERTIGO [None]
